FAERS Safety Report 23748476 (Version 2)
Quarter: 2024Q2

REPORT INFORMATION
  Report Type: Spontaneous
  Country: JP (occurrence: JP)
  Receive Date: 20240416
  Receipt Date: 20240509
  Transmission Date: 20240716
  Serious: Yes (Hospitalization)
  Sender: FDA-Public Use
  Company Number: JP-PFIZER INC-PV202400042158

PATIENT
  Age: 39 Year
  Sex: Female
  Weight: 127 kg

DRUGS (8)
  1. PAXLOVID [Suspect]
     Active Substance: NIRMATRELVIR\RITONAVIR
     Indication: COVID-19 treatment
     Dosage: [NIRMATRELVIR 300 MG]/[RITONAVIR 100 MG]
     Route: 048
     Dates: start: 20240325, end: 20240326
  2. ALPRAZOLAM [Concomitant]
     Active Substance: ALPRAZOLAM
     Indication: Anxiety
     Dosage: 0.4 MG, AS NEEDED
     Route: 048
  3. LOXOPROFEN [Concomitant]
     Active Substance: LOXOPROFEN
     Indication: Headache
     Dosage: 60 MG, AS NEEDED
     Route: 048
  4. VONOPRAZAN FUMARATE [Concomitant]
     Active Substance: VONOPRAZAN FUMARATE
     Indication: Gastric ulcer
     Dosage: 10 MG, 1X/DAY
     Route: 048
  5. TRANEXAMIC ACID [Concomitant]
     Active Substance: TRANEXAMIC ACID
     Indication: Oropharyngeal pain
     Dosage: 500 MG, 3X/DAY
     Route: 048
     Dates: start: 20240325, end: 20240401
  6. CARBOCYSTEINE [Concomitant]
     Active Substance: CARBOCYSTEINE
     Indication: Upper respiratory tract inflammation
     Dosage: 250 MG, 3X/DAY
     Route: 048
     Dates: start: 20240325, end: 20240401
  7. DEXTROMETHORPHAN [Concomitant]
     Active Substance: DEXTROMETHORPHAN
     Indication: Cough
     Dosage: 15 MG, 3X/DAY
     Route: 048
     Dates: start: 20240325, end: 20240401
  8. REBAMIPIDE [Concomitant]
     Active Substance: REBAMIPIDE
     Indication: Gastric ulcer
     Dosage: 100 MG, 3X/DAY
     Route: 048
     Dates: start: 20240325, end: 20240401

REACTIONS (7)
  - Urinary tract infection [Unknown]
  - Pyrexia [Unknown]
  - Vomiting [Recovered/Resolved]
  - Diarrhoea [Recovering/Resolving]
  - Urticaria [Not Recovered/Not Resolved]
  - Erythema [Not Recovered/Not Resolved]
  - Nausea [Recovering/Resolving]

NARRATIVE: CASE EVENT DATE: 20240326
